FAERS Safety Report 7994721-1 (Version None)
Quarter: 2011Q4

REPORT INFORMATION
  Report Type: 
  Country: None (occurrence: None)
  Receive Date: 20111220
  Receipt Date: 20111209
  Transmission Date: 20120403
  Serious: Yes (Hospitalization)
  Sender: FDA-Public Use
  Company Number: TR-JNJFOC-20111204230

PATIENT
  Sex: Male

DRUGS (6)
  1. ACETAMINOPHEN [Concomitant]
     Indication: PAIN
     Dates: start: 20111031, end: 20111031
  2. PALIPERIDONE [Suspect]
     Indication: SCHIZOPHRENIA
     Route: 030
     Dates: start: 20111031, end: 20111128
  3. OLANZAPINE [Concomitant]
     Indication: HALLUCINATION
     Dates: start: 20111005, end: 20111103
  4. OLANZAPINE [Concomitant]
     Dates: start: 20111103, end: 20111128
  5. OLANZAPINE [Concomitant]
     Dates: start: 20111103, end: 20111128
  6. OLANZAPINE [Concomitant]
     Indication: SCHIZOPHRENIA
     Dates: start: 20111005, end: 20111103

REACTIONS (1)
  - PSYCHOTIC DISORDER [None]
